FAERS Safety Report 15766185 (Version 4)
Quarter: 2019Q1

REPORT INFORMATION
  Report Type: Spontaneous
  Country: JP (occurrence: JP)
  Receive Date: 20181227
  Receipt Date: 20190325
  Transmission Date: 20190417
  Serious: Yes (Hospitalization, Other)
  Sender: FDA-Public Use
  Company Number: JP-GLAXOSMITHKLINE-JP2018JPN216674

PATIENT
  Age: 57 Year
  Sex: Female
  Weight: 44 kg

DRUGS (6)
  1. OLANZAPINE. [Concomitant]
     Active Substance: OLANZAPINE
     Indication: BIPOLAR II DISORDER
     Dosage: 7.5 MG, UNK
     Dates: end: 20181003
  2. OLANZAPINE. [Concomitant]
     Active Substance: OLANZAPINE
     Dosage: 2.5 MG, UNK
     Dates: start: 20181004, end: 20181011
  3. LAMICTAL [Suspect]
     Active Substance: LAMOTRIGINE
     Indication: BIPOLAR II DISORDER
     Dosage: 25 MG, QD(EVENING)
     Route: 048
     Dates: start: 20181001, end: 20181017
  4. BIPRESSO (QUETIAPINE FUMARATE) [Concomitant]
     Active Substance: QUETIAPINE FUMARATE
     Dosage: 150 MG, UNK
     Dates: start: 20181011, end: 20181020
  5. BIPRESSO (QUETIAPINE FUMARATE) [Concomitant]
     Active Substance: QUETIAPINE FUMARATE
     Indication: BIPOLAR II DISORDER
     Dosage: 50 MG, UNK
     Dates: start: 20181004, end: 20181010
  6. QUETIAPINE. [Concomitant]
     Active Substance: QUETIAPINE
     Indication: ANXIETY
     Dosage: UNK, PRN
     Route: 048

REACTIONS (14)
  - Stevens-Johnson syndrome [Recovered/Resolved]
  - Rash [Recovered/Resolved]
  - Feeling hot [Unknown]
  - Conjunctival hyperaemia [Recovered/Resolved]
  - Mucosal erosion [Recovered/Resolved]
  - Conjunctivitis [Recovered/Resolved]
  - Mucous membrane disorder [Recovered/Resolved]
  - Food allergy [Unknown]
  - Oral discomfort [Recovering/Resolving]
  - Vulvar erosion [Recovered/Resolved]
  - Papule [Recovered/Resolved with Sequelae]
  - Erythema [Recovered/Resolved]
  - Lymphadenopathy [Recovered/Resolved]
  - Pyrexia [Recovered/Resolved]

NARRATIVE: CASE EVENT DATE: 20181018
